FAERS Safety Report 9696544 (Version 1)
Quarter: 2013Q4

REPORT INFORMATION
  Report Type: Spontaneous
  Country: GB (occurrence: None)
  Receive Date: 20131115
  Receipt Date: 20131115
  Transmission Date: 20140711
  Serious: Yes (Death, Other)
  Sender: FDA-Public Use
  Company Number: SYM-2013-12606

PATIENT
  Age: 74 Year
  Sex: Male

DRUGS (2)
  1. FLUOROURACIL (FLUOROURACIL) (FLUOROURACIL) [Suspect]
     Indication: COLORECTAL CANCER
     Dosage: NOT OTHERWISE SPECIFIED
     Route: 042
  2. LEUCOVORIN (FOLINIC ACID) (FOLINIC ACID) [Suspect]
     Indication: COLORECTAL CANCER

REACTIONS (2)
  - Liver function test abnormal [None]
  - Cardiotoxicity [None]
